FAERS Safety Report 5270825-1 (Version None)
Quarter: 2007Q1

REPORT INFORMATION
  Report Type: 
  Country: None (occurrence: None)
  Receive Date: 20070319
  Receipt Date: 20070319
  Transmission Date: 20070707
  Serious: Yes (Hospitalization)
  Sender: FDA-Public Use
  Company Number: None

PATIENT
  Sex: Female
  Weight: 77.1115 kg

DRUGS (3)
  1. ONDANSETRON ODT 4MG TABLET 0781-5265-06 SANDOZ [Suspect]
     Indication: NAUSEA
     Dosage: 4MG TABLET X 2 ONE TIME ORAL
     Route: 048
     Dates: start: 20070209
  2. METHYLPREDNISOLONE 16MG TAB [Concomitant]
  3. PRENISOLONE [Concomitant]

REACTIONS (4)
  - DYSPNOEA [None]
  - HYPERHIDROSIS [None]
  - HYPOTENSION [None]
  - ORBITAL OEDEMA [None]
